FAERS Safety Report 4458849-5 (Version None)
Quarter: 2004Q3

REPORT INFORMATION
  Report Type: 
  Country: None (occurrence: None)
  Receive Date: 20040923
  Receipt Date: 20040923
  Transmission Date: 20050211
  Serious: Yes (Other)
  Sender: FDA-Public Use
  Company Number: None

PATIENT
  Age: 75 Year
  Sex: Female
  Weight: 62 kg

DRUGS (1)
  1. VERELAN [Suspect]
     Indication: ATRIAL FIBRILLATION
     Dosage: 120MG  BID
     Dates: start: 20031001

REACTIONS (3)
  - CARDIAC FLUTTER [None]
  - DRUG INEFFECTIVE [None]
  - PHARMACEUTICAL PRODUCT COMPLAINT [None]
